FAERS Safety Report 4866332-8 (Version None)
Quarter: 2005Q4

REPORT INFORMATION
  Report Type: 
  Country: None (occurrence: None)
  Receive Date: 20051221
  Receipt Date: 20051214
  Transmission Date: 20060501
  Serious: Yes (Hospitalization, Other)
  Sender: FDA-Public Use
  Company Number: 2005168334

PATIENT
  Age: 62 Year
  Sex: Female
  Weight: 63.5036 kg

DRUGS (5)
  1. BEXTRA [Suspect]
     Indication: BACTERIAL INFECTION
     Dosage: (2 IN 1 D)
     Dates: start: 19930601, end: 19930601
  2. AMOXICILLIN [Suspect]
     Indication: BACTERIAL INFECTION
     Dosage: 2000 MG (500 MG, 2 IN 1 D)
     Dates: start: 19930601, end: 19930601
  3. CLONIDINE [Concomitant]
  4. AMILORIDE (AMILORIDE) [Concomitant]
  5. VERAPAMIL [Concomitant]

REACTIONS (2)
  - ANAPHYLACTIC SHOCK [None]
  - DYSPHAGIA [None]
